FAERS Safety Report 9059674 (Version 1)
Quarter: 2013Q1

REPORT INFORMATION
  Report Type: Spontaneous
  Country: FR (occurrence: FR)
  Receive Date: 20130212
  Receipt Date: 20130212
  Transmission Date: 20140127
  Serious: Yes (Other)
  Sender: FDA-Public Use
  Company Number: FR-AMGEN-FRASP2013008830

PATIENT
  Sex: Female

DRUGS (3)
  1. ENBREL [Suspect]
     Indication: PRODUCT USED FOR UNKNOWN INDICATION
     Dosage: UNK
     Dates: start: 2006
  2. METFORMIN [Concomitant]
     Dosage: UNK UNK, UNK
  3. JANUVIA [Concomitant]
     Dosage: UNK UNK, UNK

REACTIONS (3)
  - Diabetes mellitus [Unknown]
  - Erythema [Unknown]
  - Abdominal pain [Unknown]
